FAERS Safety Report 14044678 (Version 1)
Quarter: 2017Q3

REPORT INFORMATION
  Report Type: Spontaneous
  Country: US (occurrence: None)
  Receive Date: 20170919
  Receipt Date: 20170919
  Transmission Date: 20171128
  Serious: Yes (Death, Hospitalization)
  Sender: FDA-Public Use
  Company Number: None

PATIENT
  Age: 4 Year
  Sex: Male
  Weight: 14.7 kg

DRUGS (5)
  1. VINCRISTINE SULFATE. [Suspect]
     Active Substance: VINCRISTINE SULFATE
     Dates: end: 20110224
  2. CYTARABINE. [Suspect]
     Active Substance: CYTARABINE
     Dates: end: 20110217
  3. METHOTREXATE. [Suspect]
     Active Substance: METHOTREXATE
     Dates: end: 20110217
  4. DEXAMETHASONE. [Suspect]
     Active Substance: DEXAMETHASONE
     Dates: end: 20110303
  5. ONCASPAR [Suspect]
     Active Substance: PEGASPARGASE
     Dates: end: 20110220

REACTIONS (11)
  - Infection [None]
  - Contusion [None]
  - Vomiting [None]
  - Back pain [None]
  - Hypotension [None]
  - Abdominal distension [None]
  - Blood culture positive [None]
  - Bacterial infection [None]
  - Abdominal pain [None]
  - Pulse absent [None]
  - Constipation [None]

NARRATIVE: CASE EVENT DATE: 20110303
